FAERS Safety Report 17165972 (Version 2)
Quarter: 2020Q4

REPORT INFORMATION
  Report Type: Spontaneous
  Country: US (occurrence: US)
  Receive Date: 20191217
  Receipt Date: 20201021
  Transmission Date: 20210113
  Serious: No
  Sender: FDA-Public Use
  Company Number: US-TEVA-2019-US-1153565

PATIENT
  Sex: Male

DRUGS (1)
  1. COPAXONE [Suspect]
     Active Substance: GLATIRAMER ACETATE
     Indication: MULTIPLE SCLEROSIS
     Dosage: 20 MILLIGRAM DAILY;
     Route: 065

REACTIONS (5)
  - Abdominal distension [Unknown]
  - Skin exfoliation [Unknown]
  - Scar [Unknown]
  - Gastrointestinal disorder [Unknown]
  - Injection site atrophy [Unknown]
